FAERS Safety Report 5238732-8 (Version None)
Quarter: 2007Q1

REPORT INFORMATION
  Report Type: 
  Country: None (occurrence: None)
  Receive Date: 20070215
  Receipt Date: 20070212
  Transmission Date: 20070707
  Serious: Yes (Death, Hospitalization)
  Sender: FDA-Public Use
  Company Number: US-SANOFI-SYNTHELABO-F03200700031

PATIENT
  Sex: Male
  Weight: 75 kg

DRUGS (14)
  1. LASIX [Concomitant]
     Route: 048
  2. INDERAL [Concomitant]
     Route: 048
  3. FOLIC ACID [Concomitant]
     Route: 048
  4. NEXIUM [Concomitant]
     Route: 048
  5. VITAMIN K [Concomitant]
     Route: 048
  6. B1 [Concomitant]
     Route: 048
  7. CETUXIMAB [Suspect]
     Indication: HEPATIC NEOPLASM MALIGNANT
     Route: 042
     Dates: start: 20070119, end: 20070119
  8. OXALIPLATIN [Suspect]
     Indication: HEPATIC NEOPLASM MALIGNANT
     Route: 042
     Dates: start: 20070112, end: 20070112
  9. ATIVAN [Concomitant]
     Route: 065
  10. COMPAZINE [Concomitant]
     Route: 048
  11. PHENERGAN [Concomitant]
     Route: 065
  12. SPIRONOLACTONE [Concomitant]
     Route: 048
  13. OXYCODONE HCL [Concomitant]
     Route: 048
  14. CAPECITABINE [Suspect]
     Indication: HEPATIC NEOPLASM MALIGNANT
     Route: 048

REACTIONS (8)
  - ACIDOSIS [None]
  - DIARRHOEA [None]
  - HEPATIC ENCEPHALOPATHY [None]
  - HYPONATRAEMIA [None]
  - LIVER DISORDER [None]
  - MENTAL STATUS CHANGES [None]
  - RESPIRATORY DISTRESS [None]
  - SEPTIC SHOCK [None]
